FAERS Safety Report 5514427-8 (Version None)
Quarter: 2007Q4

REPORT INFORMATION
  Report Type: 
  Country: None (occurrence: None)
  Receive Date: 20071113
  Receipt Date: 20071030
  Transmission Date: 20080405
  Serious: Yes (Hospitalization)
  Sender: FDA-Public Use
  Company Number: CN-JNJFOC-20071007829

PATIENT
  Age: 38 Year
  Sex: Female

DRUGS (1)
  1. NIZORAL [Suspect]
     Indication: ONYCHOMYCOSIS
     Route: 048

REACTIONS (1)
  - HEPATIC NECROSIS [None]
